FAERS Safety Report 7622330-2 (Version None)
Quarter: 2011Q3

REPORT INFORMATION
  Report Type: 
  Country: None (occurrence: None)
  Receive Date: 20110720
  Receipt Date: 20090930
  Transmission Date: 20111222
  Serious: Yes (Hospitalization, Other)
  Sender: FDA-Public Use
  Company Number: US-BAYER-200934422NA

PATIENT
  Age: 50 Year
  Sex: Female
  Weight: 82 kg

DRUGS (12)
  1. LASIX [Concomitant]
     Dosage: 20 MG, UNK
     Route: 042
     Dates: start: 20010515, end: 20010515
  2. KANAMYCIN [Concomitant]
     Dosage: 500 MG, UNK
     Route: 042
     Dates: start: 20010515, end: 20010515
  3. SUBLIMAZE PRESERVATIVE FREE [Concomitant]
     Dosage: 0.05 MG, UNK
     Route: 042
     Dates: start: 20010515, end: 20010515
  4. TRASYLOL [Suspect]
     Indication: MITRAL VALVE REPLACEMENT
     Dosage: 500000 KIU, UNK
     Route: 042
     Dates: start: 20010515, end: 20010515
  5. LASIX [Concomitant]
     Dosage: 20 MG, BID
     Route: 048
     Dates: start: 20010309
  6. POTASSIUM CHLORIDE [Concomitant]
     Dosage: 2 MEQ, UNK
     Route: 042
     Dates: start: 20010515, end: 20010515
  7. TRASYLOL [Suspect]
     Indication: CORONARY ARTERY BYPASS
     Dosage: 2 MILLION KIU PIGGY BACK BOLUS
     Route: 042
     Dates: start: 20010515, end: 20010515
  8. ZOLOFT [Concomitant]
     Dosage: 50 MG, QD
     Route: 048
     Dates: start: 20010309
  9. ANCEF [Concomitant]
     Dosage: 1 G, UNK
     Route: 042
     Dates: start: 20010515, end: 20010515
  10. ALBUMIN (HUMAN) [Concomitant]
     Dosage: 250 ML, UNK
     Route: 042
     Dates: start: 20010515, end: 20010515
  11. ALDACTONE [Concomitant]
     Dosage: 25 MG, QD
     Route: 048
     Dates: start: 20010309
  12. LIPITOR [Concomitant]
     Dosage: 10 MG, QD
     Route: 048

REACTIONS (10)
  - INJURY [None]
  - RENAL INJURY [None]
  - RENAL IMPAIRMENT [None]
  - EMOTIONAL DISTRESS [None]
  - UNEVALUABLE EVENT [None]
  - PAIN [None]
  - FEAR [None]
  - STRESS [None]
  - RENAL FAILURE [None]
  - ANXIETY [None]
